FAERS Safety Report 8990982 (Version 1)
Quarter: 2012Q4

REPORT INFORMATION
  Report Type: Spontaneous
  Country: US (occurrence: None)
  Receive Date: 20121227
  Receipt Date: 20121227
  Transmission Date: 20130627
  Serious: Yes (Other)
  Sender: FDA-Public Use
  Company Number: None

PATIENT
  Age: 60 Year
  Sex: Female
  Weight: 42.64 kg

DRUGS (2)
  1. PROAIR HFA [Suspect]
     Indication: EMPHYSEMA
     Dosage: 1 or 2 inhalations as needed  Other
     Dates: start: 20120618, end: 20120723
  2. PRO-AIR HFA [Suspect]
     Indication: EMPHYSEMA
     Dosage: 1 or 2 inhalations as needed Other
     Dates: start: 20121108, end: 20121112

REACTIONS (5)
  - Pulmonary congestion [None]
  - Oropharyngeal pain [None]
  - Product substitution issue [None]
  - Reaction to drug excipients [None]
  - Product contamination [None]
